FAERS Safety Report 21161355 (Version 8)
Quarter: 2023Q1

REPORT INFORMATION
  Report Type: Spontaneous
  Country: CA (occurrence: CA)
  Receive Date: 20220802
  Receipt Date: 20230228
  Transmission Date: 20230418
  Serious: Yes (Other)
  Sender: FDA-Public Use
  Company Number: CA-PFIZER INC-202201021103

PATIENT
  Age: 23 Year
  Sex: Female
  Weight: 78.5 kg

DRUGS (11)
  1. RUXIENCE [Suspect]
     Active Substance: RITUXIMAB-PVVR
     Indication: Granulomatosis with polyangiitis
     Dosage: 728 MG, WEEKLY (375 MG/M2 WEEKLY X4)
     Route: 042
     Dates: start: 20210607, end: 20210630
  2. RUXIENCE [Suspect]
     Active Substance: RITUXIMAB-PVVR
     Dosage: 1000 MG, DAY 1 AND DAY 15, EVERY 6 MONTHS
     Route: 042
     Dates: start: 20211222
  3. RUXIENCE [Suspect]
     Active Substance: RITUXIMAB-PVVR
     Dosage: 1000 MG, DAY 1 AND DAY 15, Q 6 MONTHS
     Route: 042
     Dates: start: 20220105
  4. RUXIENCE [Suspect]
     Active Substance: RITUXIMAB-PVVR
     Dosage: 728 MG, WEEKLY (FOR 4 DOSES)
     Route: 042
     Dates: start: 20220729
  5. RUXIENCE [Suspect]
     Active Substance: RITUXIMAB-PVVR
     Dosage: 728 MG, WEEKLY (FOR 4 DOSES)
     Route: 042
     Dates: start: 20220810
  6. RUXIENCE [Suspect]
     Active Substance: RITUXIMAB-PVVR
     Dosage: 728 MG, WEEKLY (FOR 4 DOSES)
     Route: 042
     Dates: start: 20220817
  7. RUXIENCE [Suspect]
     Active Substance: RITUXIMAB-PVVR
     Dosage: 728 MG, WEEKLY (FOR 4 DOSES)
     Route: 042
     Dates: start: 20220817
  8. RUXIENCE [Suspect]
     Active Substance: RITUXIMAB-PVVR
     Dosage: 728 MG, WEEKLY (FOR 4 DOSES)
     Route: 042
     Dates: start: 20220824
  9. RUXIENCE [Suspect]
     Active Substance: RITUXIMAB-PVVR
     Dosage: 728 MG, WEEKLY (FOR 4 DOSES)
     Route: 042
     Dates: start: 20220824
  10. METHOTREXATE [Concomitant]
     Active Substance: METHOTREXATE
     Dosage: 20 MG
     Route: 058
     Dates: start: 20210812
  11. PREDNISONE [Concomitant]
     Active Substance: PREDNISONE
     Dosage: 1 DF (DOSAGE INFO NOT AVAILABLE)
     Route: 065

REACTIONS (16)
  - Pulmonary alveolar haemorrhage [Unknown]
  - Product administration interrupted [Unknown]
  - Tachycardia [Unknown]
  - Dyspnoea [Not Recovered/Not Resolved]
  - Fatigue [Not Recovered/Not Resolved]
  - Heart rate increased [Not Recovered/Not Resolved]
  - Respiratory rate increased [Not Recovered/Not Resolved]
  - Oxygen saturation decreased [Not Recovered/Not Resolved]
  - Erythema [Recovered/Resolved]
  - Pruritus [Recovered/Resolved]
  - Rash [Recovered/Resolved]
  - Pruritus [Recovered/Resolved]
  - Product prescribing error [Unknown]
  - Off label use [Unknown]
  - Off label use [Unknown]
  - Intentional product use issue [Unknown]

NARRATIVE: CASE EVENT DATE: 20220701
